FAERS Safety Report 5606739-4 (Version None)
Quarter: 2008Q1

REPORT INFORMATION
  Report Type: 
  Country: None (occurrence: None)
  Receive Date: 20080125
  Receipt Date: 20080114
  Transmission Date: 20080703
  Serious: No
  Sender: FDA-Public Use
  Company Number: ZV D-AB -08-007

PATIENT
  Age: 67 Year
  Sex: Male

DRUGS (4)
  1. ATENOLOL [Suspect]
     Indication: ATRIAL FIBRILLATION
     Dosage: 50 MG QD PO
     Route: 048
     Dates: start: 20061215, end: 20061222
  2. ATENOLOL [Suspect]
     Indication: ATRIAL FIBRILLATION
     Dosage: 25 MG QD PO
     Route: 048
     Dates: start: 20061222, end: 20070710
  3. PROPAFENONE HCL [Concomitant]
  4. SYNTHROID [Suspect]

REACTIONS (12)
  - ASTHENIA [None]
  - CHEST DISCOMFORT [None]
  - DYSGEUSIA [None]
  - DYSPEPSIA [None]
  - DYSPNOEA [None]
  - FATIGUE [None]
  - JOINT SWELLING [None]
  - MENTAL STATUS CHANGES [None]
  - MUSCULOSKELETAL PAIN [None]
  - NAUSEA [None]
  - TENDON PAIN [None]
  - VISION BLURRED [None]
